FAERS Safety Report 4533295-4 (Version None)
Quarter: 2004Q4

REPORT INFORMATION
  Report Type: 
  Country: None (occurrence: None)
  Receive Date: 20041206
  Receipt Date: 20041012
  Transmission Date: 20050328
  Serious: No
  Sender: FDA-Public Use
  Company Number: USA041080940

PATIENT
  Age: 64 Year
  Sex: Female
  Weight: 77 kg

DRUGS (4)
  1. CYMBALTA [Suspect]
     Indication: DEPRESSION
     Dosage: 60 MG/ 1 DAY
     Dates: start: 20040921
  2. XYPREXA (OLANZAPINE) [Concomitant]
  3. LOTREL [Concomitant]
  4. CLARINEX [Concomitant]

REACTIONS (1)
  - DRUG EFFECT DECREASED [None]
